FAERS Safety Report 24868325 (Version 1)
Quarter: 2025Q1

REPORT INFORMATION
  Report Type: Spontaneous
  Country: US (occurrence: US)
  Receive Date: 20250121
  Receipt Date: 20250121
  Transmission Date: 20250408
  Serious: Yes (Hospitalization)
  Sender: MYLAN
  Company Number: US-MYLANLABS-2025M1003115

PATIENT
  Age: 40 Year
  Sex: Female

DRUGS (3)
  1. POLYETHYLENE GLYCOL 3350 [Suspect]
     Active Substance: POLYETHYLENE GLYCOL 3350
     Indication: Faecalith
     Route: 065
  2. PRUCALOPRIDE [Suspect]
     Active Substance: PRUCALOPRIDE
     Indication: Faecalith
     Route: 065
  3. SENNA LEAF [Suspect]
     Active Substance: SENNA LEAF
     Indication: Faecalith
     Route: 065

REACTIONS (1)
  - Drug ineffective [Unknown]
